FAERS Safety Report 19767112 (Version 1)
Quarter: 2021Q3

REPORT INFORMATION
  Report Type: Spontaneous
  Country: DE (occurrence: DE)
  Receive Date: 20210830
  Receipt Date: 20210830
  Transmission Date: 20211014
  Serious: Yes (Disabling)
  Sender: FDA-Public Use
  Company Number: None

PATIENT
  Age: 38 Year
  Sex: Female
  Weight: 58 kg

DRUGS (7)
  1. TURNERIC [Concomitant]
  2. OMEGA 3 [Concomitant]
     Active Substance: OMEGA-3 FATTY ACIDS
  3. COLLAGEN [Concomitant]
     Active Substance: COLLAGEN
  4. VITAMIN B12 [Concomitant]
     Active Substance: CYANOCOBALAMIN
  5. PREDNISONE. [Suspect]
     Active Substance: PREDNISONE
  6. PROTOPIC [Suspect]
     Active Substance: TACROLIMUS
     Route: 061
  7. VITAMIN D3 [Concomitant]
     Active Substance: CHOLECALCIFEROL

REACTIONS (12)
  - Oedema [None]
  - Eye infection [None]
  - Rash [None]
  - Drug withdrawal syndrome [None]
  - Burning sensation [None]
  - Urinary tract infection [None]
  - Renal pain [None]
  - Neuralgia [None]
  - Insomnia [None]
  - Impaired work ability [None]
  - Hypersensitivity [None]
  - Skin exfoliation [None]

NARRATIVE: CASE EVENT DATE: 20200315
